FAERS Safety Report 7066593-3 (Version None)
Quarter: 2010Q4

REPORT INFORMATION
  Report Type: 
  Country: None (occurrence: None)
  Receive Date: 20101027
  Receipt Date: 20100610
  Transmission Date: 20110411
  Serious: No
  Sender: FDA-Public Use
  Company Number: US-WYE-H15597110

PATIENT
  Sex: Female

DRUGS (2)
  1. PREMPRO [Suspect]
     Dosage: ^0.625MG^
     Route: 048
  2. VARENICLINE [Suspect]
     Dosage: UNKNOWN
     Route: 065

REACTIONS (3)
  - ANGER [None]
  - COLITIS [None]
  - DEPRESSION [None]
